FAERS Safety Report 6464155-X (Version None)
Quarter: 2009Q4

REPORT INFORMATION
  Report Type: 
  Country: None (occurrence: None)
  Receive Date: 20091201
  Receipt Date: 20091020
  Transmission Date: 20100525
  Serious: Yes (Other)
  Sender: FDA-Public Use
  Company Number: US-AMGEN-QUU370228

PATIENT
  Sex: Male

DRUGS (2)
  1. ENBREL [Suspect]
     Indication: RHEUMATOID ARTHRITIS
     Route: 058
  2. METHOTREXATE [Concomitant]
     Route: 048
     Dates: start: 20090416

REACTIONS (4)
  - ANXIETY [None]
  - DEPRESSION [None]
  - DISTURBANCE IN ATTENTION [None]
  - TOOTH ABSCESS [None]
